FAERS Safety Report 17816951 (Version 3)
Quarter: 2020Q2

REPORT INFORMATION
  Report Type: Spontaneous
  Country: IE (occurrence: IE)
  Receive Date: 20200522
  Receipt Date: 20200616
  Transmission Date: 20200714
  Serious: Yes (Hospitalization, Other)
  Sender: FDA-Public Use
  Company Number: IE-PFIZER INC-2020198888

PATIENT
  Age: 28 Year
  Sex: Female

DRUGS (5)
  1. DALACIN C [Suspect]
     Active Substance: CLINDAMYCIN
     Dosage: 450 MG, 4X/DAY
     Dates: start: 20200201
  2. AZALIA [Concomitant]
     Indication: EPILEPSY
     Dosage: UNK
     Dates: start: 20181114
  3. FLAGYL [Suspect]
     Active Substance: METRONIDAZOLE\METRONIDAZOLE HYDROCHLORIDE
     Dosage: 400 MG, 2X/DAY
     Dates: start: 20200201
  4. KYLEENA [Suspect]
     Active Substance: LEVONORGESTREL
     Indication: PROGESTERONE DECREASED
     Dosage: 17.5 UG, DAILY CONTINUOUSLY
     Route: 015
     Dates: start: 20180212
  5. KYLEENA [Suspect]
     Active Substance: LEVONORGESTREL
     Indication: CONTRACEPTION

REACTIONS (6)
  - Medical device pain [Not Recovered/Not Resolved]
  - Seizure [Unknown]
  - Post procedural haemorrhage [Unknown]
  - Cervicitis [Not Recovered/Not Resolved]
  - Urinary tract infection [Not Recovered/Not Resolved]
  - Vaginal haemorrhage [Unknown]

NARRATIVE: CASE EVENT DATE: 20200201
